FAERS Safety Report 24904569 (Version 1)
Quarter: 2025Q1

REPORT INFORMATION
  Report Type: Spontaneous
  Country: US (occurrence: US)
  Receive Date: 20250130
  Receipt Date: 20250130
  Transmission Date: 20250409
  Serious: No
  Sender: Tarsus Pharmaceuticals
  Company Number: US-TARSUS PHARMACEUTICALS-TSP-US-2024-000592

PATIENT
  Age: 45 Year
  Sex: Male
  Weight: 81.633 kg

DRUGS (1)
  1. XDEMVY [Suspect]
     Active Substance: LOTILANER
     Indication: Arthropod infestation
     Dosage: 1 DROP, BID INTO EACH EYE
     Route: 047
     Dates: start: 20241124, end: 20241124

REACTIONS (3)
  - Gastrointestinal disorder [Recovered/Resolved]
  - Lethargy [Recovered/Resolved]
  - Pain [Recovered/Resolved]

NARRATIVE: CASE EVENT DATE: 20241124
